FAERS Safety Report 7320455-2 (Version None)
Quarter: 2011Q1

REPORT INFORMATION
  Report Type: 
  Country: None (occurrence: None)
  Receive Date: 20110228
  Receipt Date: 20110218
  Transmission Date: 20110831
  Serious: Yes (Hospitalization)
  Sender: FDA-Public Use
  Company Number: B0699178A

PATIENT
  Sex: Female
  Weight: 48 kg

DRUGS (6)
  1. SORAFENIB [Suspect]
     Indication: NEOPLASM
     Dosage: 400MG TWICE PER DAY
     Route: 048
     Dates: start: 20101028
  2. BROMAZEPAM [Concomitant]
     Indication: ANXIETY
     Route: 048
     Dates: start: 20101114
  3. RANITIDINE [Concomitant]
     Indication: PROPHYLAXIS
     Dosage: 300MG PER DAY
     Route: 048
     Dates: start: 20101011, end: 20110125
  4. PREDNISONE [Concomitant]
     Indication: ASTHMA
     Route: 048
     Dates: start: 20101222, end: 20110125
  5. LAPATINIB [Suspect]
     Indication: NEOPLASM
     Dosage: 1250MG PER DAY
     Route: 048
     Dates: start: 20101013
  6. RIZATRIPTAN [Concomitant]
     Indication: MIGRAINE
     Route: 048

REACTIONS (6)
  - ASPARTATE AMINOTRANSFERASE INCREASED [None]
  - BLOOD BILIRUBIN INCREASED [None]
  - BLOOD GLUCOSE INCREASED [None]
  - BLOOD SODIUM DECREASED [None]
  - DECREASED APPETITE [None]
  - DIARRHOEA [None]
